FAERS Safety Report 10037190 (Version 1)
Quarter: 2014Q1

REPORT INFORMATION
  Report Type: Spontaneous
  Country: GB (occurrence: US)
  Receive Date: 20140326
  Receipt Date: 20140326
  Transmission Date: 20141002
  Serious: No
  Sender: FDA-Public Use
  Company Number: GB-009507513-1403USA009598

PATIENT
  Age: 15 Year
  Sex: Male

DRUGS (2)
  1. SINGULAIR [Suspect]
     Indication: ASTHMA
     Dosage: UNK
     Route: 048
     Dates: end: 201310
  2. VENTOLIN (ALBUTEROL) [Concomitant]
     Dosage: UNK

REACTIONS (1)
  - Irritability [Recovered/Resolved]
